FAERS Safety Report 4382871-0 (Version None)
Quarter: 2004Q2

REPORT INFORMATION
  Report Type: 
  Country: None (occurrence: None)
  Receive Date: 20040602
  Receipt Date: 20031001
  Transmission Date: 20050107
  Serious: Yes (Hospitalization)
  Sender: FDA-Public Use
  Company Number: NSADSS2002040739

PATIENT
  Age: 59 Year
  Sex: Female
  Weight: 117.9352 kg

DRUGS (12)
  1. PROPULSID [Suspect]
     Indication: GASTROOESOPHAGEAL REFLUX DISEASE
     Dosage: 20 MG, 10 MG, 4 IN 1 DAY, ORAL
     Route: 048
     Dates: start: 19970717
  2. PROPULSID [Suspect]
     Indication: GASTROOESOPHAGEAL REFLUX DISEASE
     Dosage: 20 MG, 10 MG, 4 IN 1 DAY, ORAL
     Route: 048
     Dates: start: 19980401
  3. IMURAN [Concomitant]
  4. PLAQUENIL [Concomitant]
  5. LIPITOR [Concomitant]
  6. PLENDIL [Concomitant]
  7. GLUCOTROL [Concomitant]
  8. GLUCOPHAGE [Concomitant]
  9. TICLID (TICLIPIDINE HYDROCHLORIDE) [Concomitant]
  10. NEURONTIN [Concomitant]
  11. DIOVAN [Concomitant]
  12. SYNTHROID [Concomitant]

REACTIONS (6)
  - ASTHMA [None]
  - ATAXIA [None]
  - CARDIAC MURMUR [None]
  - CAROTID BRUIT [None]
  - DIABETIC NEUROPATHY [None]
  - MUSCLE SPASMS [None]
